FAERS Safety Report 5021109-8 (Version None)
Quarter: 2006Q2

REPORT INFORMATION
  Report Type: 
  Country: None (occurrence: None)
  Receive Date: 20060425
  Receipt Date: 20050302
  Transmission Date: 20061013
  Serious: No
  Sender: FDA-Public Use
  Company Number: WAES 0503USA00386

PATIENT

DRUGS (3)
  1. SINGULAIR [Suspect]
     Dosage: 4 MG DAILY PO
     Route: 048
  2. PULMICORT [Concomitant]
  3. ZYRTEC [Concomitant]

REACTIONS (1)
  - UNEVALUABLE EVENT [None]
